FAERS Safety Report 10567154 (Version 4)
Quarter: 2015Q2

REPORT INFORMATION
  Report Type: Spontaneous
  Country: US (occurrence: US)
  Receive Date: 20141105
  Receipt Date: 20150603
  Transmission Date: 20150821
  Serious: Yes (Hospitalization)
  Sender: FDA-Public Use
  Company Number: US-ACTELION-A-US2014-106616

PATIENT
  Age: 59 Year
  Sex: Male

DRUGS (17)
  1. SILDENAFIL. [Concomitant]
     Active Substance: SILDENAFIL
  2. TYVASO [Concomitant]
     Active Substance: TREPROSTINIL
  3. WARFARIN [Concomitant]
     Active Substance: WARFARIN
  4. ALLOPURINOL CF [Concomitant]
  5. METOLAZONE. [Concomitant]
     Active Substance: METOLAZONE
  6. OPSUMIT [Suspect]
     Active Substance: MACITENTAN
     Indication: PULMONARY ARTERIAL HYPERTENSION
     Dosage: 10 MG, QD
     Route: 048
     Dates: start: 20140514
  7. METOPROLOL [Concomitant]
     Active Substance: METOPROLOL
  8. LEFLUNOMIDE. [Concomitant]
     Active Substance: LEFLUNOMIDE
  9. ARAVA [Concomitant]
     Active Substance: LEFLUNOMIDE
  10. TRAMADOL [Concomitant]
     Active Substance: TRAMADOL
  11. PANTOPRAZOLE [Concomitant]
     Active Substance: PANTOPRAZOLE SODIUM
  12. FUROSEMIDE. [Concomitant]
     Active Substance: FUROSEMIDE
  13. LIPITOR [Concomitant]
     Active Substance: ATORVASTATIN CALCIUM
  14. DILTIAZEM HYDROCHLORIDE EXTENDED RELEASE [Concomitant]
     Active Substance: DILTIAZEM HYDROCHLORIDE
  15. PREDNISONE. [Concomitant]
     Active Substance: PREDNISONE
  16. REVATIO [Concomitant]
     Active Substance: SILDENAFIL CITRATE
  17. POTASSIUM [Concomitant]
     Active Substance: POTASSIUM

REACTIONS (6)
  - Chest pain [Recovering/Resolving]
  - Dyspnoea [Recovering/Resolving]
  - Syncope [Recovered/Resolved]
  - Supraventricular tachycardia [Recovering/Resolving]
  - Atrial tachycardia [Recovered/Resolved]
  - Influenza [Recovered/Resolved]
